FAERS Safety Report 7653578-9 (Version None)
Quarter: 2011Q3

REPORT INFORMATION
  Report Type: 
  Country: None (occurrence: None)
  Receive Date: 20110802
  Receipt Date: 20110802
  Transmission Date: 20111222
  Serious: Yes (Other)
  Sender: FDA-Public Use
  Company Number: None

PATIENT
  Sex: Female
  Weight: 58.0604 kg

DRUGS (1)
  1. ACTONEL [Suspect]
     Indication: OSTEOPOROSIS
     Dosage: 35 MG 1 TAB WEEKLY P.O. ORAL
     Route: 048
     Dates: start: 20000101, end: 20110101

REACTIONS (8)
  - MYALGIA [None]
  - HYPOAESTHESIA [None]
  - HYPOAESTHESIA ORAL [None]
  - GROIN PAIN [None]
  - JAW DISORDER [None]
  - BACK PAIN [None]
  - PAIN IN EXTREMITY [None]
  - ARTHRALGIA [None]
